FAERS Safety Report 16200321 (Version 4)
Quarter: 2019Q2

REPORT INFORMATION
  Report Type: Report from Study
  Country: None (occurrence: BE)
  Receive Date: 20190416
  Receipt Date: 20190424
  Transmission Date: 20190711
  Serious: Yes (Hospitalization)
  Sender: FDA-Public Use
  Company Number: BE-ABBVIE-19S-013-2742848-00

PATIENT
  Age: 71 Year
  Sex: Female

DRUGS (7)
  1. DUODOPA [Suspect]
     Active Substance: CARBIDOPA\LEVODOPA
     Dosage: MD=11ML, CD=4.4ML/HR DURING 16HRS?ED=1.5ML
     Route: 050
     Dates: start: 20190419
  2. DUODOPA [Suspect]
     Active Substance: CARBIDOPA\LEVODOPA
     Indication: PARKINSON^S DISEASE
     Dosage: MD= 11ML, CD= 3.6ML/HR DURING 16HRS , ED= 1.5ML
     Route: 050
     Dates: start: 20190408, end: 20190409
  3. PROLOPA 250 [Concomitant]
     Dosage: FORM STRENGTH: 200MG/50MG RESCUE MEDICATION
  4. DUODOPA [Suspect]
     Active Substance: CARBIDOPA\LEVODOPA
     Dosage: MD= 11ML CD= 3.6ML/HR DURING 16HRS  ED= 1.5ML
     Route: 050
     Dates: start: 20190409, end: 20190410
  5. PROLOPA 250 [Concomitant]
     Indication: PARKINSON^S DISEASE
     Dosage: FORM STRENGTH: 200MG/50MG; UNIT DOSE:  0.5 CAPSULE 2 TIMES A DAY
     Route: 048
  6. DUODOPA [Suspect]
     Active Substance: CARBIDOPA\LEVODOPA
     Dosage: MD= 11ML  CD= 4.1ML/HR DURING 16HRS  ED= 1.5ML
     Route: 050
     Dates: start: 20190410, end: 20190419
  7. PROLOPA HBS [Concomitant]
     Active Substance: BENSERAZIDE\LEVODOPA
     Indication: PRODUCT USED FOR UNKNOWN INDICATION

REACTIONS (10)
  - Device dislocation [Recovered/Resolved]
  - Feeling abnormal [Unknown]
  - Device power source issue [Recovered/Resolved]
  - Muscle rigidity [Not Recovered/Not Resolved]
  - Off label use [Recovered/Resolved]
  - Stress [Unknown]
  - Musculoskeletal stiffness [Not Recovered/Not Resolved]
  - Panic reaction [Recovered/Resolved]
  - Malaise [Not Recovered/Not Resolved]
  - Device issue [Unknown]

NARRATIVE: CASE EVENT DATE: 201904
